FAERS Safety Report 13955382 (Version 1)
Quarter: 2017Q3

REPORT INFORMATION
  Report Type: Spontaneous
  Country: SE (occurrence: SE)
  Receive Date: 20170911
  Receipt Date: 20170911
  Transmission Date: 20171128
  Serious: Yes (Other)
  Sender: FDA-Public Use
  Company Number: PHHY2017SE132074

PATIENT
  Age: 86 Year
  Sex: Female

DRUGS (3)
  1. COSOPT [Concomitant]
     Active Substance: DORZOLAMIDE HYDROCHLORIDE\TIMOLOL MALEATE
     Indication: GLAUCOMA
     Dosage: UNK
     Route: 065
  2. CORTISONE [Concomitant]
     Active Substance: CORTISONE\HYDROCORTISONE
     Indication: FIBROMYALGIA
     Route: 065
  3. ACLASTA [Suspect]
     Active Substance: ZOLEDRONIC ACID
     Indication: FIBROMYALGIA
     Dosage: UNK
     Route: 065
     Dates: start: 201704

REACTIONS (6)
  - Cardiac arrest [Unknown]
  - Heart rate increased [Unknown]
  - Tremor [Unknown]
  - Anxiety [Unknown]
  - Insomnia [Unknown]
  - Syncope [Unknown]

NARRATIVE: CASE EVENT DATE: 201704
